FAERS Safety Report 8832540 (Version 3)
Quarter: 2013Q1

REPORT INFORMATION
  Report Type: Report from Study
  Country: JP (occurrence: JP)
  Receive Date: 20121010
  Receipt Date: 20130215
  Transmission Date: 20140127
  Serious: Yes (Hospitalization)
  Sender: FDA-Public Use
  Company Number: JP-009507513-1210JPN003004

PATIENT
  Age: 60 Year
  Sex: Female
  Weight: 55 kg

DRUGS (27)
  1. PEGINTRON [Suspect]
     Indication: CHRONIC HEPATITIS C
     Dosage: 1.0 MICROGRAM PER KILOGRAM, QW
     Route: 058
     Dates: start: 20120921, end: 20120927
  2. PEGINTRON [Suspect]
     Dosage: 1.5 MICROGRAM PER KILOGRAM, QW
     Route: 058
     Dates: start: 20120803, end: 20120920
  3. PEGINTRON [Suspect]
     Dosage: 1.5  MICROGRAM PER KILOGRAM, QW
     Route: 058
     Dates: start: 20121002, end: 20130118
  4. REBETOL [Suspect]
     Indication: CHRONIC HEPATITIS C
     Dosage: 200 MG, QD
     Route: 048
     Dates: start: 20120817, end: 20120920
  5. REBETOL [Suspect]
     Dosage: 600 MG, QD
     Route: 048
     Dates: start: 20120803, end: 20120809
  6. REBETOL [Suspect]
     Dosage: 400 MG, QD
     Route: 048
     Dates: start: 20120810, end: 20120816
  7. REBETOL [Suspect]
     Dosage: 200 MG, QD
     Route: 048
     Dates: start: 20121002, end: 20130125
  8. TELAVIC [Suspect]
     Indication: CHRONIC HEPATITIS C
     Dosage: 1500 MG, QD
     Route: 048
     Dates: start: 20120803, end: 20120920
  9. TELAVIC [Suspect]
     Dosage: 750 MG, QD
     Route: 048
     Dates: start: 20121002
  10. URSO [Concomitant]
     Indication: CHRONIC HEPATITIS C
     Dosage: FORMULATION: POR
     Route: 048
  11. RENIVACE [Concomitant]
     Indication: HYPERTENSION
     Dosage: 5 MG, QD, FORMULATION:POR
     Route: 048
     Dates: start: 20121109
  12. ADALAT CR [Concomitant]
     Indication: HYPERTENSION
     Dosage: 40 MG,QD
     Route: 048
  13. ADALAT CR [Concomitant]
     Dosage: 40 MG, QD
     Route: 048
     Dates: start: 20121109
  14. PREMINENT TABLETS [Concomitant]
     Indication: HYPERTENSION
     Dosage: 1 DF, QD
     Route: 048
     Dates: end: 20120921
  15. LASIX (FUROSEMIDE) [Concomitant]
     Indication: HYPERTENSION
     Dosage: 20 MG, QD
     Route: 048
     Dates: end: 20120920
  16. HORMONES (UNSPECIFIED) [Concomitant]
     Indication: DIABETES MELLITUS
     Dosage: 8 DF, QD
     Route: 058
  17. NOVORAPID [Concomitant]
     Indication: DIABETES MELLITUS
     Dosage: 6 DF, QD
     Route: 058
  18. MENTAX [Concomitant]
     Indication: PROPHYLAXIS
     Dosage: UNK PRN, DAILY DOSE UNKNOWN
     Route: 061
     Dates: start: 20120803, end: 20120914
  19. [COMPOSITION UNSPECIFIED] [Concomitant]
     Indication: PROPHYLAXIS
     Dosage: AS PER NEED, FORMULATION: LOT
     Route: 048
     Dates: start: 20120803, end: 20120914
  20. NAUZELIN [Concomitant]
     Dosage: FROMULATION: SUSPENSION
     Route: 054
  21. LENDORMIN [Concomitant]
     Indication: INSOMNIA
     Dosage: 0.25 MG, QD
     Route: 048
  22. FEBURIC [Concomitant]
     Indication: HYPERURICAEMIA
     Dosage: 20 MG, QD
     Route: 048
  23. [COMPOSITION UNSPECIFIED] [Concomitant]
     Dosage: AS NEEDED
     Route: 051
     Dates: start: 20121026
  24. ATARAX P [Concomitant]
     Dosage: 25 MG PER DAY / AS NEEDED
     Route: 058
     Dates: start: 20121001, end: 20121026
  25. [COMPOSITION UNSPECIFIED] [Concomitant]
     Dosage: AS NEEDED
     Route: 061
     Dates: start: 20121026, end: 20121112
  26. KENALOG [Concomitant]
     Dosage: AS NEEDED
     Route: 061
  27. AFTACH [Concomitant]
     Route: 051

REACTIONS (4)
  - Decreased appetite [Recovering/Resolving]
  - Haemoglobin decreased [Not Recovered/Not Resolved]
  - Anaemia [Not Recovered/Not Resolved]
  - Haemoglobin decreased [Recovering/Resolving]
